FAERS Safety Report 5907253-9 (Version None)
Quarter: 2008Q4

REPORT INFORMATION
  Report Type: 
  Country: None (occurrence: None)
  Receive Date: 20081003
  Receipt Date: 20080926
  Transmission Date: 20090506
  Serious: Yes (Other)
  Sender: FDA-Public Use
  Company Number: PHHY2008JP16278

PATIENT
  Sex: Male
  Weight: 60 kg

DRUGS (13)
  1. ICL670A ICL+DISTAB [Suspect]
     Indication: IRON OVERLOAD
     Dosage: 1000 MG/DAY
     Route: 048
     Dates: start: 20080620, end: 20080717
  2. ICL670A ICL+DISTAB [Suspect]
     Dosage: 500 MG/DAY
     Route: 048
     Dates: start: 20080718, end: 20080722
  3. GASCON [Concomitant]
     Dosage: 80 MG, UNK
     Route: 048
     Dates: start: 20080718, end: 20080722
  4. ASPIRIN [Concomitant]
     Dosage: 100 MG, UNK
     Dates: start: 20070601
  5. LANSOPRAZOLE [Concomitant]
     Dosage: 15 MG, UNK
     Route: 048
     Dates: start: 20070601
  6. SPARA [Concomitant]
     Dosage: 100 MG, UNK
     Dates: start: 20070830
  7. SUNRYTHM [Concomitant]
     Dosage: 100 MG, UNK
     Route: 048
     Dates: start: 20080319
  8. AMBROXOL HYDROCHLORIDE [Concomitant]
     Dosage: 45 MG, UNK
     Route: 048
     Dates: start: 20080411
  9. PREDNISOLONE [Concomitant]
     Dosage: 10 MG, UNK
     Route: 048
  10. ERYTHROCIN                         /00020904/ [Concomitant]
     Dosage: 100 MG, UNK
     Route: 048
  11. CYANOCOBALAMIN [Concomitant]
     Dosage: 1500 UG, UNK
     Route: 048
  12. PRIMOBOLAN [Concomitant]
     Dosage: 15 MG, UNK
     Route: 048
  13. URSO 250 [Concomitant]
     Dosage: 300 MG, UNK
     Route: 048

REACTIONS (4)
  - ABDOMINAL DISTENSION [None]
  - AGRANULOCYTOSIS [None]
  - PYREXIA [None]
  - STOMATITIS [None]
